FAERS Safety Report 23878984 (Version 1)
Quarter: 2024Q2

REPORT INFORMATION
  Report Type: Spontaneous
  Country: US (occurrence: None)
  Receive Date: 20240520
  Receipt Date: 20240520
  Transmission Date: 20240716
  Serious: Yes (Congenital Anomaly)
  Sender: FDA-Public Use
  Company Number: None

PATIENT
  Sex: Female
  Weight: 3.06 kg

DRUGS (1)
  1. SERTRALINE HYDROCHLORIDE [Suspect]
     Active Substance: SERTRALINE HYDROCHLORIDE
     Dates: start: 20200530

REACTIONS (4)
  - Ventricular septal defect [None]
  - Supraventricular tachycardia [None]
  - Atrial tachycardia [None]
  - Wolff-Parkinson-White syndrome [None]

NARRATIVE: CASE EVENT DATE: 20210221
